FAERS Safety Report 9460315 (Version 2)
Quarter: 2013Q3

REPORT INFORMATION
  Report Type: Spontaneous
  Country: US (occurrence: None)
  Receive Date: 20130812
  Receipt Date: 20130816
  Transmission Date: 20140515
  Serious: Yes (Death, Other)
  Sender: FDA-Public Use
  Company Number: 20130364

PATIENT
  Age: 58 Year
  Sex: Male

DRUGS (7)
  1. HYDRALAZINE [Suspect]
     Indication: PRODUCT USED FOR UNKNOWN INDICATION
     Dosage: 50MG (TID) FOR 3-4
  2. WARFARIN [Concomitant]
  3. ASPIRIN [Concomitant]
  4. LISINOPRIL [Concomitant]
  5. CARVEDILOL [Concomitant]
  6. SPIRONOLACTONE [Concomitant]
  7. BUMETINIDE [Concomitant]

REACTIONS (7)
  - Anti-neutrophil cytoplasmic antibody positive vasculitis [None]
  - Pulmonary renal syndrome [None]
  - Continuous haemodiafiltration [None]
  - Red blood cells urine positive [None]
  - Urinary casts [None]
  - Pulmonary alveolar haemorrhage [None]
  - Pulmonary embolism [None]
